FAERS Safety Report 5175665-X (Version None)
Quarter: 2006Q4

REPORT INFORMATION
  Report Type: 
  Country: None (occurrence: None)
  Receive Date: 20061215
  Receipt Date: 20060714
  Transmission Date: 20070319
  Serious: No
  Sender: FDA-Public Use
  Company Number: US-AMGEN-KDL186580

PATIENT
  Sex: Female

DRUGS (4)
  1. ENBREL [Suspect]
     Indication: PSORIASIS
     Route: 058
     Dates: start: 20060710, end: 20060721
  2. XANAX [Concomitant]
  3. INDERAL [Concomitant]
  4. AVAPRO [Concomitant]

REACTIONS (3)
  - HYPOAESTHESIA FACIAL [None]
  - LOCAL SWELLING [None]
  - SWELLING FACE [None]
